FAERS Safety Report 19656497 (Version 2)
Quarter: 2022Q3

REPORT INFORMATION
  Report Type: Spontaneous
  Country: CA (occurrence: CA)
  Receive Date: 20210804
  Receipt Date: 20220802
  Transmission Date: 20221027
  Serious: Yes (Hospitalization)
  Sender: FDA-Public Use
  Company Number: None

PATIENT
  Age: 65 Year
  Sex: Male

DRUGS (18)
  1. ATORVASTATIN [Interacting]
     Active Substance: ATORVASTATIN
     Indication: Dyslipidaemia
     Dosage: 1 EVERY 1 DAYS
     Route: 048
  2. PANTOPRAZOLE [Interacting]
     Active Substance: PANTOPRAZOLE
     Indication: Product used for unknown indication
     Route: 065
  3. ASPIRIN [Concomitant]
     Active Substance: ASPIRIN
  4. CARDIZEM CD [Concomitant]
     Active Substance: DILTIAZEM HYDROCHLORIDE
     Dosage: CAPSULE, EXTENDED RELEASE
  5. ODEFSEY [Concomitant]
     Active Substance: EMTRICITABINE\RILPIVIRINE HYDROCHLORIDE\TENOFOVIR ALAFENAMIDE FUMARATE
  6. FAMOTIDINE [Concomitant]
     Active Substance: FAMOTIDINE
     Route: 065
  7. PANTOPRAZOLE SODIUM [Concomitant]
     Active Substance: PANTOPRAZOLE SODIUM
     Dosage: ENTERIC COATED TABLET
  8. PEPCID [Concomitant]
     Active Substance: FAMOTIDINE
  9. PERINDOPRIL [Concomitant]
     Active Substance: PERINDOPRIL
  10. PREGABALIN [Concomitant]
     Active Substance: PREGABALIN
  11. DARUNAVIR [Concomitant]
     Active Substance: DARUNAVIR
  12. QUETIAPINE [Concomitant]
     Active Substance: QUETIAPINE
  13. RISPERIDONE [Concomitant]
     Active Substance: RISPERIDONE
  14. RITONAVIR [Concomitant]
     Active Substance: RITONAVIR
  15. THIAMINE [Concomitant]
     Active Substance: THIAMINE
  16. DOLUTEGRAVIR [Concomitant]
     Active Substance: DOLUTEGRAVIR
  17. VENLAFAXINE HYDROCHLORIDE [Concomitant]
     Active Substance: VENLAFAXINE HYDROCHLORIDE
  18. VITAMIN D [Concomitant]
     Active Substance: VITAMIN D NOS

REACTIONS (6)
  - Rhabdomyolysis [Recovered/Resolved]
  - Abdominal pain [Recovered/Resolved]
  - Confusional state [Recovered/Resolved]
  - Drug interaction [Unknown]
  - Dyspnoea [Recovered/Resolved]
  - Blood creatine phosphokinase increased [Recovered/Resolved]
